FAERS Safety Report 9431736 (Version 1)
Quarter: 2013Q3

REPORT INFORMATION
  Report Type: Spontaneous
  Country: US (occurrence: US)
  Receive Date: 20130731
  Receipt Date: 20130731
  Transmission Date: 20140515
  Serious: Yes (Other)
  Sender: FDA-Public Use
  Company Number: US-AMGEN-USASP2013052776

PATIENT
  Age: 55 Year
  Sex: Female

DRUGS (1)
  1. ENBREL [Suspect]
     Indication: RHEUMATOID ARTHRITIS
     Dosage: 50 MG, QWK
     Route: 065
     Dates: start: 20060424, end: 20130609

REACTIONS (4)
  - Clostridium difficile infection [Not Recovered/Not Resolved]
  - Lung infection [Recovered/Resolved]
  - Abnormal faeces [Not Recovered/Not Resolved]
  - Sinusitis [Recovered/Resolved]
